FAERS Safety Report 4959993-6 (Version None)
Quarter: 2006Q1

REPORT INFORMATION
  Report Type: 
  Country: None (occurrence: None)
  Receive Date: 20060331
  Receipt Date: 20000814
  Transmission Date: 20060701
  Serious: Yes (Death, Life-Threatening)
  Sender: FDA-Public Use
  Company Number: CA-MERCK-00088555B2

PATIENT

DRUGS (2)
  1. PRINIVIL [Suspect]
     Indication: ESSENTIAL HYPERTENSION
     Dates: start: 19940101, end: 20000101
  2. PRINIVIL [Suspect]
     Dates: start: 20000101

REACTIONS (13)
  - CONGENITAL ANOMALY [None]
  - DIALYSIS [None]
  - DRUG EXPOSURE BEFORE PREGNANCY [None]
  - DRUG EXPOSURE DURING PREGNANCY [None]
  - DRUG TOXICITY [None]
  - EAR MALFORMATION [None]
  - HEAD CIRCUMFERENCE ABNORMAL [None]
  - HEART DISEASE CONGENITAL [None]
  - HYPERTENSION [None]
  - INTRA-UTERINE DEATH [None]
  - KIDNEY MALFORMATION [None]
  - OLIGOHYDRAMNIOS [None]
  - PULMONARY HYPOPLASIA [None]
